FAERS Safety Report 7620573-5 (Version None)
Quarter: 2011Q3

REPORT INFORMATION
  Report Type: 
  Country: None (occurrence: None)
  Receive Date: 20110719
  Receipt Date: 20110706
  Transmission Date: 20111222
  Serious: Yes (Hospitalization)
  Sender: FDA-Public Use
  Company Number: FR-ROCHE-785443

PATIENT
  Sex: Female

DRUGS (5)
  1. CARBOPLATIN [Suspect]
     Indication: BREAST CANCER
     Route: 042
     Dates: start: 20110520, end: 20110520
  2. ONDANSETRON [Suspect]
     Dosage: FREQUENCY: ONCE. STOP DATE REPORTED AS : MAY 2011.
     Route: 042
     Dates: start: 20110519
  3. PREDNISOLONE [Suspect]
     Dosage: FREQUENCY: ONCE.
     Route: 042
     Dates: start: 20110518, end: 20110520
  4. DOCETAXEL [Suspect]
     Indication: BREAST CANCER
     Route: 042
     Dates: start: 20110520, end: 20110520
  5. HERCEPTIN [Suspect]
     Indication: BREAST CANCER
     Route: 042
     Dates: start: 20110519, end: 20110519

REACTIONS (3)
  - COLITIS ISCHAEMIC [None]
  - PYREXIA [None]
  - ABDOMINAL PAIN [None]
